FAERS Safety Report 14765735 (Version 1)
Quarter: 2018Q2

REPORT INFORMATION
  Report Type: Spontaneous
  Country: US (occurrence: US)
  Receive Date: 20180416
  Receipt Date: 20180416
  Transmission Date: 20180711
  Serious: Yes (Other)
  Sender: FDA-Public Use
  Company Number: US-TEVA-2018-US-880348

PATIENT
  Age: 90 Year
  Sex: Female
  Weight: 52 kg

DRUGS (3)
  1. MUCINEX [Concomitant]
     Active Substance: GUAIFENESIN
     Dates: start: 20180331
  2. PROAIR HFA [Suspect]
     Active Substance: ALBUTEROL SULFATE
     Indication: BRONCHITIS
     Dates: start: 20180331
  3. CALCIUM [Concomitant]
     Active Substance: CALCIUM

REACTIONS (6)
  - Disturbance in attention [Unknown]
  - Ligament sprain [Unknown]
  - Pneumonia [Unknown]
  - Insomnia [Unknown]
  - Product use in unapproved indication [Unknown]
  - Fatigue [Unknown]

NARRATIVE: CASE EVENT DATE: 20180403
